FAERS Safety Report 9562017 (Version 1)
Quarter: 2013Q3

REPORT INFORMATION
  Report Type: Spontaneous
  Country: IT (occurrence: IT)
  Receive Date: 20130927
  Receipt Date: 20130927
  Transmission Date: 20140515
  Serious: Yes (Hospitalization)
  Sender: FDA-Public Use
  Company Number: IT-ROCHE-1281640

PATIENT
  Age: 81 Year
  Sex: Male

DRUGS (7)
  1. TORADOL [Suspect]
     Indication: BACK PAIN
     Route: 030
     Dates: start: 20130611, end: 20130611
  2. RAMIPRIL [Concomitant]
     Route: 065
  3. CARDICOR [Concomitant]
     Route: 065
  4. SIVASTIN [Concomitant]
  5. AMIODAR [Concomitant]
     Route: 065
  6. XATRAL [Concomitant]
     Route: 065
  7. AVODART [Concomitant]
     Route: 065

REACTIONS (2)
  - Dyspnoea [Recovered/Resolved]
  - Hypertensive crisis [Recovered/Resolved]
